FAERS Safety Report 24142148 (Version 1)
Quarter: 2024Q3

REPORT INFORMATION
  Report Type: Spontaneous
  Country: GB (occurrence: GB)
  Receive Date: 20240726
  Receipt Date: 20240726
  Transmission Date: 20241017
  Serious: Yes (Hospitalization, Other)
  Sender: CIPLA
  Company Number: GB-MHRA-MED-202406251221265000-PMZRF

PATIENT

DRUGS (1)
  1. ALBUTEROL [Suspect]
     Active Substance: ALBUTEROL
     Indication: Adverse drug reaction
     Dosage: UNK
     Route: 065

REACTIONS (2)
  - Blood lactic acid increased [Recovering/Resolving]
  - Blood glucose increased [Recovering/Resolving]
